FAERS Safety Report 12325402 (Version 2)
Quarter: 2016Q2

REPORT INFORMATION
  Report Type: Spontaneous
  Country: US (occurrence: US)
  Receive Date: 20160502
  Receipt Date: 20160615
  Transmission Date: 20160815
  Serious: Yes (Other)
  Sender: FDA-Public Use
  Company Number: US-NOVOPROD-489883

PATIENT
  Age: 60 Year
  Sex: Female

DRUGS (4)
  1. LEVEMIR [Suspect]
     Active Substance: INSULIN DETEMIR
     Dosage: 20 UNITS DAILY
     Route: 058
     Dates: start: 2016, end: 2016
  2. LEVEMIR [Suspect]
     Active Substance: INSULIN DETEMIR
     Indication: TYPE 2 DIABETES MELLITUS
     Dosage: 20 UNITS DAILY
     Route: 058
     Dates: start: 2014, end: 2016
  3. LEVEMIR [Suspect]
     Active Substance: INSULIN DETEMIR
     Dosage: 20 UNITS DAILY
     Route: 058
     Dates: start: 2016
  4. LEVEMIR [Suspect]
     Active Substance: INSULIN DETEMIR
     Dosage: 20 UNITS DAILY
     Route: 058
     Dates: start: 2016, end: 2016

REACTIONS (1)
  - Cerebrovascular accident [Recovered/Resolved with Sequelae]

NARRATIVE: CASE EVENT DATE: 201601
